FAERS Safety Report 19750433 (Version 1)
Quarter: 2021Q3

REPORT INFORMATION
  Report Type: Spontaneous
  Country: IT (occurrence: IT)
  Receive Date: 20210826
  Receipt Date: 20210826
  Transmission Date: 20211014
  Serious: Yes (Death, Hospitalization, Other)
  Sender: FDA-Public Use
  Company Number: IT-MYLANLABS-2021M1055861

PATIENT
  Age: 26 Year
  Sex: Male

DRUGS (2)
  1. CYCLOSPORIN A [Suspect]
     Active Substance: CYCLOSPORINE
     Indication: ANKYLOSING SPONDYLITIS
     Dosage: 200 MG, DAILY
  2. METHOTREXATE MYLAN [Suspect]
     Active Substance: METHOTREXATE SODIUM
     Indication: ANKYLOSING SPONDYLITIS
     Dosage: 10 MG, WEEKLY

REACTIONS (5)
  - Coma [Fatal]
  - Treatment noncompliance [Unknown]
  - Meningitis tuberculous [Fatal]
  - Subacute sclerosing panencephalitis [Fatal]
  - Cardio-respiratory distress [Fatal]
